FAERS Safety Report 19000494 (Version 2)
Quarter: 2021Q1

REPORT INFORMATION
  Report Type: Spontaneous
  Country: TH (occurrence: TH)
  Receive Date: 20210311
  Receipt Date: 20210317
  Transmission Date: 20210420
  Serious: Yes (Hospitalization)
  Sender: FDA-Public Use
  Company Number: TH-BAUSCH-BL-2021-007311

PATIENT
  Age: 22 Year
  Sex: Female

DRUGS (2)
  1. KHK4827 (BRODALUMAB) [Suspect]
     Active Substance: BRODALUMAB
     Indication: PUSTULAR PSORIASIS
     Route: 058
     Dates: start: 20200311
  2. KHK4827 (BRODALUMAB) [Suspect]
     Active Substance: BRODALUMAB
     Route: 058

REACTIONS (4)
  - Pustular psoriasis [Not Recovered/Not Resolved]
  - Blood culture [Unknown]
  - Pustule [Unknown]
  - Pyrexia [Recovered/Resolved]
